FAERS Safety Report 17199235 (Version 1)
Quarter: 2019Q4

REPORT INFORMATION
  Report Type: Spontaneous
  Country: GB (occurrence: GB)
  Receive Date: 20191225
  Receipt Date: 20191225
  Transmission Date: 20200122
  Serious: Yes (Hospitalization)
  Sender: FDA-Public Use
  Company Number: GB-TEVA-2019-GB-1157206

PATIENT
  Age: 90 Year
  Sex: Female

DRUGS (7)
  1. CASSIA [Concomitant]
  2. BUPRENORPHINE. [Concomitant]
     Active Substance: BUPRENORPHINE
  3. MEMANTINE. [Concomitant]
     Active Substance: MEMANTINE
  4. FERROUS FUMARATE [Concomitant]
     Active Substance: FERROUS FUMARATE
  5. CLINDAMYCIN. [Suspect]
     Active Substance: CLINDAMYCIN
     Route: 048
  6. OMEPRAZOLE. [Concomitant]
     Active Substance: OMEPRAZOLE
  7. PREDNISOLONE. [Concomitant]
     Active Substance: PREDNISOLONE

REACTIONS (1)
  - Immune thrombocytopenic purpura [Recovering/Resolving]
